FAERS Safety Report 23188927 (Version 1)
Quarter: 2023Q4

REPORT INFORMATION
  Report Type: Spontaneous
  Country: CN (occurrence: CN)
  Receive Date: 20231115
  Receipt Date: 20231115
  Transmission Date: 20240110
  Serious: Yes (Other)
  Sender: FDA-Public Use
  Company Number: CN-GILEAD-2023-0651179

PATIENT
  Age: 51 Year
  Sex: Female

DRUGS (1)
  1. SACITUZUMAB GOVITECAN-HZIY [Suspect]
     Active Substance: SACITUZUMAB GOVITECAN-HZIY
     Indication: Triple negative breast cancer
     Dosage: 8 MG/KG AT EA. CYCLE
     Route: 065
     Dates: start: 2022

REACTIONS (2)
  - Myelosuppression [Recovered/Resolved]
  - Pneumonia [Recovered/Resolved]
